FAERS Safety Report 14237826 (Version 6)
Quarter: 2018Q2

REPORT INFORMATION
  Report Type: Report from Study
  Country: None (occurrence: CO)
  Receive Date: 20171130
  Receipt Date: 20180530
  Transmission Date: 20180711
  Serious: Yes (Hospitalization, Other)
  Sender: FDA-Public Use
  Company Number: CO-ABBVIE-17K-036-2176845-00

PATIENT
  Age: 78 Year
  Sex: Male

DRUGS (1)
  1. HUMIRA [Suspect]
     Active Substance: ADALIMUMAB
     Indication: PSORIASIS
     Route: 058
     Dates: start: 20170922, end: 20171114

REACTIONS (7)
  - Drowning [Unknown]
  - Choking sensation [Recovering/Resolving]
  - Pleural effusion [Recovering/Resolving]
  - Pulmonary tuberculosis [Recovered/Resolved]
  - Chills [Unknown]
  - Pleural effusion [Recovering/Resolving]
  - Upper airway obstruction [Recovering/Resolving]

NARRATIVE: CASE EVENT DATE: 2017
